FAERS Safety Report 4791822-6 (Version None)
Quarter: 2005Q4

REPORT INFORMATION
  Report Type: 
  Country: None (occurrence: None)
  Receive Date: 20051007
  Receipt Date: 20050927
  Transmission Date: 20060501
  Serious: Yes (Hospitalization)
  Sender: FDA-Public Use
  Company Number: FR-JNJFOC-20051001304

PATIENT
  Age: 78 Year
  Sex: Male

DRUGS (7)
  1. TOPALGIC [Suspect]
     Indication: DRUG USE FOR UNKNOWN INDICATION
     Route: 065
  2. LASILIX [Suspect]
     Indication: DRUG USE FOR UNKNOWN INDICATION
     Route: 065
  3. BRISTOPEN [Suspect]
     Indication: DRUG USE FOR UNKNOWN INDICATION
     Route: 048
  4. CALCIPARINE [Suspect]
     Indication: DRUG USE FOR UNKNOWN INDICATION
     Route: 058
  5. CALCIDIA [Suspect]
     Indication: DRUG USE FOR UNKNOWN INDICATION
     Route: 048
  6. PROZAC [Suspect]
     Indication: DRUG USE FOR UNKNOWN INDICATION
     Route: 048
  7. MOPRAL [Suspect]
     Indication: UNEVALUABLE EVENT
     Route: 048

REACTIONS (1)
  - PLATELET COUNT DECREASED [None]
